FAERS Safety Report 9658005 (Version 2)
Quarter: 2014Q2

REPORT INFORMATION
  Report Type: Spontaneous
  Country: US (occurrence: US)
  Receive Date: 20131030
  Receipt Date: 20140530
  Transmission Date: 20141212
  Serious: No
  Sender: FDA-Public Use
  Company Number: US-009507513-1310USA014318

PATIENT
  Age: 54 Year
  Sex: Female

DRUGS (1)
  1. MIRALAX [Suspect]
     Indication: COLONOSCOPY
     Dosage: UNK, UNKNOWN
     Route: 048
     Dates: start: 20131018, end: 20131020

REACTIONS (3)
  - Unevaluable event [Recovering/Resolving]
  - Anger [Unknown]
  - Drug ineffective for unapproved indication [Unknown]
